FAERS Safety Report 20922838 (Version 1)
Quarter: 2022Q2

REPORT INFORMATION
  Report Type: Spontaneous
  Country: US (occurrence: US)
  Receive Date: 20220607
  Receipt Date: 20220607
  Transmission Date: 20220721
  Serious: Yes (Other)
  Sender: FDA-Public Use
  Company Number: US-STRIDES ARCOLAB LIMITED-2022SP004471

PATIENT
  Age: 5 Year

DRUGS (5)
  1. PREDNISOLONE [Suspect]
     Active Substance: PREDNISOLONE
     Indication: Allogenic stem cell transplantation
     Dosage: UNK,INITIAL DOSE NOT STATED
     Route: 065
  2. PREDNISOLONE [Suspect]
     Active Substance: PREDNISOLONE
     Dosage: 0.47 MILLIGRAM/KILOGRAM
     Route: 065
  3. PREDNISOLONE [Suspect]
     Active Substance: PREDNISOLONE
     Dosage: 1 MILLIGRAM/KILOGRAM; FOR CHRONIC GVHD
     Route: 065
  4. MYCOPHENOLATE MOFETIL [Suspect]
     Active Substance: MYCOPHENOLATE MOFETIL
     Indication: Allogenic stem cell transplantation
     Dosage: UNK
     Route: 065
  5. MYCOPHENOLATE MOFETIL [Suspect]
     Active Substance: MYCOPHENOLATE MOFETIL
     Dosage: UNK; FOR CHRONIC GVHD
     Route: 065

REACTIONS (2)
  - Graft versus host disease [Unknown]
  - Off label use [Unknown]
